FAERS Safety Report 8395852-7 (Version None)
Quarter: 2012Q2

REPORT INFORMATION
  Report Type: 
  Country: None (occurrence: None)
  Receive Date: 20120529
  Receipt Date: 20120529
  Transmission Date: 20120825
  Serious: No
  Sender: FDA-Public Use
  Company Number: None

PATIENT
  Age: 22 Year
  Sex: Female
  Weight: 73.4827 kg

DRUGS (2)
  1. SOLODYN [Suspect]
     Indication: POLYCYSTIC OVARIES
     Dosage: 80 MG TABLETS QUANTITY 20/BX 1 TABLET DAILY PO
     Route: 048
     Dates: start: 20120523, end: 20120524
  2. SOLODYN [Suspect]
     Indication: ACNE
     Dosage: 80 MG TABLETS QUANTITY 20/BX 1 TABLET DAILY PO
     Route: 048
     Dates: start: 20120523, end: 20120524

REACTIONS (10)
  - MENTAL DISORDER [None]
  - MOANING [None]
  - INITIAL INSOMNIA [None]
  - DIZZINESS [None]
  - TACHYPHRENIA [None]
  - DISTURBANCE IN ATTENTION [None]
  - TUNNEL VISION [None]
  - ANXIETY [None]
  - ABDOMINAL PAIN UPPER [None]
  - CRYING [None]
